FAERS Safety Report 24860766 (Version 1)
Quarter: 2025Q1

REPORT INFORMATION
  Report Type: Spontaneous
  Country: CN (occurrence: CN)
  Receive Date: 20250120
  Receipt Date: 20250120
  Transmission Date: 20250409
  Serious: Yes (Other)
  Sender: AMGEN
  Company Number: CN-AMGEN-CHNSP2025009279

PATIENT

DRUGS (4)
  1. REPATHA [Suspect]
     Active Substance: EVOLOCUMAB
     Indication: Ischaemic stroke
     Dosage: 140 MILLIGRAM (1ML), Q2WK
     Route: 058
  2. LIPITOR [Concomitant]
     Active Substance: ATORVASTATIN CALCIUM
     Indication: Ischaemic stroke
     Dosage: 40 MILLIGRAM, QD (ONCE NIGHTLY)
     Route: 048
  3. CLOPIDOGREL [Concomitant]
     Active Substance: CLOPIDOGREL BISULFATE
     Indication: Antiplatelet therapy
  4. CLOPIDOGREL [Concomitant]
     Active Substance: CLOPIDOGREL BISULFATE
     Dosage: 75 MILLIGRAM, QD (FROM THE SECOND DAY UNTIL THE 90TH DAY)

REACTIONS (4)
  - Ischaemic stroke [Unknown]
  - Neurological decompensation [Unknown]
  - Liver function test abnormal [Unknown]
  - Renal function test abnormal [Unknown]
